FAERS Safety Report 25307776 (Version 1)
Quarter: 2025Q2

REPORT INFORMATION
  Report Type: Report from Study
  Country: AR (occurrence: AR)
  Receive Date: 20250513
  Receipt Date: 20250513
  Transmission Date: 20250717
  Serious: Yes (Other)
  Sender: NOVARTIS
  Company Number: AR-002147023-NVSC2025AR053231

PATIENT
  Sex: Female

DRUGS (7)
  1. KISQALI [Suspect]
     Active Substance: RIBOCICLIB SUCCINATE
     Indication: Breast cancer metastatic
     Dosage: 600 MG, QD
     Route: 065
     Dates: start: 20221119, end: 20250115
  2. KISQALI [Suspect]
     Active Substance: RIBOCICLIB SUCCINATE
     Dosage: UNK UNK, QD
     Route: 065
     Dates: start: 202405
  3. KISQALI [Suspect]
     Active Substance: RIBOCICLIB SUCCINATE
     Route: 065
     Dates: end: 20250118
  4. KISQALI [Suspect]
     Active Substance: RIBOCICLIB SUCCINATE
     Route: 065
     Dates: end: 202501
  5. LETROZOLE [Suspect]
     Active Substance: LETROZOLE
     Indication: Product used for unknown indication
     Dosage: 2.5 MG, QD
     Route: 065
     Dates: start: 20221119, end: 20250115
  6. LETROZOLE [Suspect]
     Active Substance: LETROZOLE
     Dosage: UNK, QD
     Route: 065
     Dates: start: 202405
  7. LETROZOLE [Suspect]
     Active Substance: LETROZOLE
     Route: 065
     Dates: end: 20250118

REACTIONS (10)
  - Paralysis [Unknown]
  - Gait inability [Unknown]
  - Muscular weakness [Unknown]
  - Malaise [Unknown]
  - Influenza [Recovered/Resolved]
  - Blood iron decreased [Unknown]
  - Platelet count decreased [Recovering/Resolving]
  - Arthralgia [Unknown]
  - Wrong technique in product usage process [Unknown]
  - Influenza [Recovered/Resolved]

NARRATIVE: CASE EVENT DATE: 20240101
